FAERS Safety Report 7698945-2 (Version None)
Quarter: 2011Q3

REPORT INFORMATION
  Report Type: 
  Country: None (occurrence: None)
  Receive Date: 20110819
  Receipt Date: 20110816
  Transmission Date: 20111222
  Serious: Yes (Life-Threatening, Hospitalization)
  Sender: FDA-Public Use
  Company Number: DE-ABBOTT-11P-062-0847420-00

PATIENT
  Age: 55 Year
  Sex: Male

DRUGS (5)
  1. INFLIXIMAB [Concomitant]
     Indication: PRODUCT USED FOR UNKNOWN INDICATION
     Dosage: 400MG, CUMULATED 1600MG
     Dates: start: 20021101, end: 20030301
  2. HUMIRA [Suspect]
     Indication: RHEUMATOID ARTHRITIS
     Dates: start: 20030601, end: 20070301
  3. METHOTREXATE [Concomitant]
     Dosage: 20MG
     Dates: start: 20041108
  4. METHOTREXATE [Concomitant]
     Dates: start: 20051128
  5. METHOTREXATE [Concomitant]
     Indication: PRODUCT USED FOR UNKNOWN INDICATION
     Dosage: 25MG
     Dates: start: 20021119

REACTIONS (4)
  - INTERVERTEBRAL DISC PROTRUSION [None]
  - AORTIC ANEURYSM [None]
  - POLYNEUROPATHY [None]
  - IMPAIRED HEALING [None]
